FAERS Safety Report 10351548 (Version 3)
Quarter: 2014Q4

REPORT INFORMATION
  Report Type: Spontaneous
  Country: JP (occurrence: JP)
  Receive Date: 20140730
  Receipt Date: 20141021
  Transmission Date: 20150528
  Serious: Yes (Death)
  Sender: FDA-Public Use
  Company Number: JP-PFIZER INC-2014211214

PATIENT
  Age: 85 Year
  Sex: Female
  Weight: 37 kg

DRUGS (15)
  1. MEDROL [Concomitant]
     Active Substance: METHYLPREDNISOLONE
     Indication: ASTHMA
     Dosage: 2 MG/DAY
     Route: 048
     Dates: end: 20140710
  2. PRAVASTATIN SODIUM. [Concomitant]
     Active Substance: PRAVASTATIN SODIUM
     Indication: HYPERLIPIDAEMIA
     Dosage: 10 MG/DAY
     Route: 048
     Dates: end: 20140710
  3. MUCODYNE [Concomitant]
     Active Substance: CARBOCYSTEINE
     Indication: ASTHMA
     Dosage: 1500 MG/DAY
     Route: 048
     Dates: start: 20140611, end: 20140710
  4. GASTER [Concomitant]
     Active Substance: FAMOTIDINE
     Dosage: 20 MG/DAY
     Route: 048
     Dates: end: 20140710
  5. ZOSYN [Suspect]
     Active Substance: PIPERACILLIN SODIUM\TAZOBACTAM SODIUM
     Indication: BRONCHOPNEUMONIA
     Dosage: 4.5 G, 3X/DAY
     Route: 041
     Dates: start: 20140609, end: 20140615
  6. BIO-THREE [Concomitant]
     Active Substance: HERBALS
     Indication: PROPHYLAXIS AGAINST DIARRHOEA
     Dosage: 3 TAB/DAY
     Route: 048
     Dates: start: 20140611, end: 20140710
  7. CELECOX [Concomitant]
     Active Substance: CELECOXIB
     Indication: BACK PAIN
     Dosage: 200 MG/DAY
     Route: 048
     Dates: end: 20140710
  8. RIZE [Concomitant]
     Active Substance: CLOTIAZEPAM
     Dosage: 5 MG/DAY
     Route: 048
     Dates: end: 20140710
  9. HEPAFLUSH [Concomitant]
     Indication: CATHETERISATION VENOUS
     Dosage: 500 IU/DAY
     Route: 042
     Dates: start: 20140609, end: 20140615
  10. GLACTIV [Concomitant]
     Active Substance: SITAGLIPTIN
     Indication: DIABETES MELLITUS
     Dosage: 50 MG/DAY
     Route: 048
     Dates: end: 20140710
  11. ACTONEL [Concomitant]
     Active Substance: RISEDRONATE SODIUM
     Dosage: UNK
     Route: 048
  12. THEO-DUR [Concomitant]
     Active Substance: THEOPHYLLINE ANHYDROUS
     Indication: ASTHMA
     Dosage: 200 MG/DAY
     Route: 048
     Dates: start: 20140611, end: 20140710
  13. MICARDIS [Concomitant]
     Active Substance: TELMISARTAN
     Indication: HYPERTENSION
     Dosage: 20 MG/DAY
     Route: 048
     Dates: end: 20140710
  14. MONTELUKAST [Concomitant]
     Active Substance: MONTELUKAST SODIUM
     Indication: ASTHMA
     Dosage: 10 MG/DAY
     Route: 048
     Dates: end: 20140710
  15. LUPRAC [Concomitant]
     Active Substance: TORSEMIDE
     Indication: OEDEMA
     Dosage: 8 MG/DAY
     Route: 048
     Dates: end: 20140710

REACTIONS (1)
  - Acute kidney injury [Fatal]

NARRATIVE: CASE EVENT DATE: 20140619
